FAERS Safety Report 16310508 (Version 4)
Quarter: 2021Q3

REPORT INFORMATION
  Report Type: Spontaneous
  Country: US (occurrence: US)
  Receive Date: 20190514
  Receipt Date: 20210726
  Transmission Date: 20211014
  Serious: Yes (Other)
  Sender: FDA-Public Use
  Company Number: US-TAKEDA-2019TUS029368

PATIENT

DRUGS (30)
  1. PRILOSEC [Suspect]
     Active Substance: OMEPRAZOLE MAGNESIUM
     Dosage: 20 MILLIGRAM, QD
     Route: 048
     Dates: end: 2017
  2. CLONIDINE HCL [Concomitant]
     Active Substance: CLONIDINE HYDROCHLORIDE
  3. GLIPIZIDE. [Concomitant]
     Active Substance: GLIPIZIDE
  4. PREVACID [Suspect]
     Active Substance: LANSOPRAZOLE
     Indication: HYPERSENSITIVITY
     Dosage: UNK
     Route: 042
     Dates: start: 201301, end: 201704
  5. OMEPRAZOLE MAGNESIUM. [Suspect]
     Active Substance: OMEPRAZOLE MAGNESIUM
     Dosage: 20 MILLIGRAM, QD
     Route: 048
     Dates: end: 2017
  6. OMEPRAZOLE. [Suspect]
     Active Substance: OMEPRAZOLE
     Indication: GASTROOESOPHAGEAL REFLUX DISEASE
     Dosage: 20 MILLIGRAM, QD
     Route: 048
     Dates: end: 2017
  7. NITROFURANTOIN. [Concomitant]
     Active Substance: NITROFURANTOIN
  8. PRILOSEC [Suspect]
     Active Substance: OMEPRAZOLE MAGNESIUM
     Indication: GASTROOESOPHAGEAL REFLUX DISEASE
     Dosage: UNK
     Route: 048
     Dates: start: 201301, end: 201704
  9. NEXIUM 24HR [Suspect]
     Active Substance: ESOMEPRAZOLE MAGNESIUM
     Dosage: 40 MILLIGRAM, QD
     Route: 048
     Dates: end: 2017
  10. AZITHROMYCINE [Concomitant]
     Active Substance: AZITHROMYCIN
  11. MONTELUKAST [Concomitant]
     Active Substance: MONTELUKAST SODIUM
  12. PROTONIX [Suspect]
     Active Substance: PANTOPRAZOLE SODIUM
     Indication: GASTROOESOPHAGEAL REFLUX DISEASE
     Dosage: UNK
     Route: 042
     Dates: start: 201301, end: 201704
  13. PREVACID [Suspect]
     Active Substance: LANSOPRAZOLE
     Dosage: 30 MILLIGRAM, QD
     Route: 042
     Dates: end: 2018
  14. DEXILANT [Suspect]
     Active Substance: DEXLANSOPRAZOLE
     Indication: GASTROOESOPHAGEAL REFLUX DISEASE
     Dosage: UNK
     Route: 048
     Dates: start: 201301, end: 201704
  15. ZOLPIDEM [Concomitant]
     Active Substance: ZOLPIDEM TARTRATE
  16. TYLENOL [Concomitant]
     Active Substance: ACETAMINOPHEN
     Dosage: UNK
     Route: 048
     Dates: start: 2001
  17. NEXIUM [Suspect]
     Active Substance: ESOMEPRAZOLE MAGNESIUM
     Indication: GASTROOESOPHAGEAL REFLUX DISEASE
     Dosage: UNK
     Route: 048
     Dates: start: 201301, end: 201704
  18. LEVOFLOXACIN. [Concomitant]
     Active Substance: LEVOFLOXACIN
  19. PRILOSEC [Suspect]
     Active Substance: OMEPRAZOLE MAGNESIUM
     Dosage: 40 MILLIGRAM, BID
     Route: 048
  20. NEXIUM [Suspect]
     Active Substance: ESOMEPRAZOLE MAGNESIUM
     Dosage: 20 MILLIGRAM, QD
     Route: 065
  21. TRAMADOL. [Concomitant]
     Active Substance: TRAMADOL
  22. GAVISCON [Concomitant]
     Active Substance: ALUMINUM HYDROXIDE\MAGNESIUM CARBONATE
     Indication: ANTACID THERAPY
     Dosage: UNK
     Route: 048
     Dates: start: 1992, end: 1994
  23. NEXIUM [Suspect]
     Active Substance: ESOMEPRAZOLE MAGNESIUM
     Dosage: 40 MILLIGRAM, QD
     Route: 065
     Dates: end: 2017
  24. OMEPRAZOLE MAGNESIUM. [Suspect]
     Active Substance: OMEPRAZOLE MAGNESIUM
     Indication: GASTROOESOPHAGEAL REFLUX DISEASE
     Dosage: UNK
     Route: 048
     Dates: start: 201301, end: 201704
  25. PROTONIX [Suspect]
     Active Substance: PANTOPRAZOLE SODIUM
     Dosage: 40 MILLIGRAM, QD
     Route: 042
     Dates: end: 2018
  26. PREVACID [Suspect]
     Active Substance: LANSOPRAZOLE
     Indication: GASTROOESOPHAGEAL REFLUX DISEASE
     Dosage: UNK
     Route: 048
     Dates: start: 201301, end: 201704
  27. DEXILANT [Suspect]
     Active Substance: DEXLANSOPRAZOLE
     Dosage: 60 MILLIGRAM, QD
     Route: 048
  28. PRILOSEC [Suspect]
     Active Substance: OMEPRAZOLE MAGNESIUM
     Dosage: 20 MILLIGRAM, BID
     Route: 048
  29. NEXIUM 24HR [Suspect]
     Active Substance: ESOMEPRAZOLE MAGNESIUM
     Indication: GASTROOESOPHAGEAL REFLUX DISEASE
     Dosage: UNK
     Route: 048
     Dates: start: 201301, end: 201704
  30. TUMS [Concomitant]
     Active Substance: CALCIUM CARBONATE
     Indication: ANTACID THERAPY
     Dosage: UNK
     Route: 048
     Dates: start: 2001

REACTIONS (4)
  - Chronic kidney disease [Not Recovered/Not Resolved]
  - Gastrooesophageal reflux disease [Not Recovered/Not Resolved]
  - End stage renal disease [Not Recovered/Not Resolved]
  - Acute kidney injury [Not Recovered/Not Resolved]

NARRATIVE: CASE EVENT DATE: 2011
